FAERS Safety Report 17983898 (Version 1)
Quarter: 2020Q3

REPORT INFORMATION
  Report Type: Spontaneous
  Country: DE (occurrence: DE)
  Receive Date: 20200706
  Receipt Date: 20200706
  Transmission Date: 20201103
  Serious: Yes (Hospitalization)
  Sender: FDA-Public Use
  Company Number: DE-TEVA-2020-DE-1795492

PATIENT
  Age: 68 Year
  Sex: Male

DRUGS (14)
  1. MAGNESIUM VERLA [Concomitant]
     Active Substance: MAGNESIUM
     Dosage: 1 DOSAGE FORMS DAILY; NK MG, 1?0?0?0
  2. METHOTREXAT [Suspect]
     Active Substance: METHOTREXATE
     Dosage: 15 MG / WEEK,
  3. TAMSULOSIN [Concomitant]
     Active Substance: TAMSULOSIN
     Dosage: .4 MILLIGRAM DAILY; 1?0?0?0
  4. APIXABAN [Suspect]
     Active Substance: APIXABAN
     Dosage: 20 MILLIGRAM DAILY; 1?0?1?0
  5. TRIAMTEREN [Concomitant]
     Active Substance: TRIAMTERENE
     Dosage: 10 MILLIGRAM DAILY; 1?0?0?0
  6. EPIPEVISONE [Concomitant]
     Dosage: 10|1 MG, NK
  7. EISEN III [Concomitant]
     Dosage: 35 MILLIGRAM DAILY; 1?0?0?0
  8. VITAMIN B COMPLEX NOS [Concomitant]
     Active Substance: CYANOCOBALAMIN\PYRIDOXINE HYDROCHLORIDE\RIBOFLAVIN\SODIUM PANTOTHENATE\THIAMINE HYDROCHLORIDE\VITAMIN B COMPLEX
     Dosage: 1 DOSAGE FORMS DAILY; NK MG, 1?0?0?0
  9. RAMIPRIL. [Concomitant]
     Active Substance: RAMIPRIL
     Dosage: 5 MILLIGRAM DAILY; 1?0?0?0
  10. COLECALCIFEROL (VITAMIN D) [Concomitant]
     Dosage: 1 DOSAGE FORMS DAILY; NK MG, 1?0?0?0
  11. FOLSAURE [Concomitant]
     Active Substance: FOLIC ACID
     Dosage: UNIT DOSE: 5MG, 5 MG / WEEK
  12. PANTOPRAZOL [Suspect]
     Active Substance: PANTOPRAZOLE SODIUM
     Dosage: 40 MILLIGRAM DAILY; 1?0?0?0
  13. SOLEDUM [Concomitant]
     Active Substance: EUCALYPTOL
     Dosage: 1 DOSAGE FORMS DAILY; NK MG, 1?0?0?0
  14. PROSTAGUTT FORTE [Concomitant]
     Active Substance: HERBALS
     Dosage: 1 DOSAGE FORMS DAILY; 80|60 MG, 1?0?0?0

REACTIONS (2)
  - Chest pain [Unknown]
  - Dyspnoea [Unknown]
